FAERS Safety Report 20891084 (Version 3)
Quarter: 2022Q3

REPORT INFORMATION
  Report Type: Spontaneous
  Country: US (occurrence: US)
  Receive Date: 20220530
  Receipt Date: 20220728
  Transmission Date: 20221027
  Serious: Yes (Hospitalization)
  Sender: FDA-Public Use
  Company Number: US-BRISTOL-MYERS SQUIBB COMPANY-2022-049266

PATIENT
  Age: 69 Year
  Sex: Male

DRUGS (8)
  1. REVLIMID [Suspect]
     Active Substance: LENALIDOMIDE
     Indication: Plasma cell myeloma
     Dosage: 1 CAPSULE (10 MG) DAILY FOR 21 DAYS ON ,THEN 7 DAYS OFF
     Route: 048
     Dates: start: 20171012
  2. REVLIMID [Suspect]
     Active Substance: LENALIDOMIDE
     Dosage: TAKE TABLET BY MOUTH DAILY FOR 21 DAYS, THEN 7 DAYS OFF EVERY 28 DAY CYCLE,
     Route: 048
     Dates: start: 20171012
  3. ASPIRIN CHW 81MG [Concomitant]
     Indication: Product used for unknown indication
     Dosage: CHEW
     Route: 065
  4. FAMOTIDINE [Concomitant]
     Active Substance: FAMOTIDINE
     Indication: Product used for unknown indication
     Route: 065
  5. GABAPENTIN [Concomitant]
     Active Substance: GABAPENTIN
     Indication: Product used for unknown indication
     Route: 065
  6. MAGNESIUM [Concomitant]
     Active Substance: MAGNESIUM
     Indication: Product used for unknown indication
     Route: 065
  7. TAMSULOSIN [Concomitant]
     Active Substance: TAMSULOSIN
     Indication: Product used for unknown indication
     Route: 065
  8. VITAMIN D 1000 [Concomitant]
     Indication: Product used for unknown indication
     Dosage: 1000
     Route: 065

REACTIONS (4)
  - Infection [Unknown]
  - Asthenia [Unknown]
  - Dizziness [Unknown]
  - Renal disorder [Unknown]

NARRATIVE: CASE EVENT DATE: 20220516
